FAERS Safety Report 8382990-8 (Version None)
Quarter: 2012Q2

REPORT INFORMATION
  Report Type: 
  Country: None (occurrence: None)
  Receive Date: 20120524
  Receipt Date: 20120523
  Transmission Date: 20120825
  Serious: Yes (Other)
  Sender: FDA-Public Use
  Company Number: US-PFIZER INC-2012125262

PATIENT
  Sex: Female
  Weight: 75 kg

DRUGS (2)
  1. ZOLOFT [Suspect]
     Indication: ANXIETY
     Dosage: 50 MG, DAILY
     Dates: start: 20120401
  2. AMBIEN [Suspect]
     Indication: SLEEP DISORDER
     Dosage: 10 MG, UNK

REACTIONS (8)
  - BALANCE DISORDER [None]
  - DYSPNOEA [None]
  - BEDRIDDEN [None]
  - FEELING HOT [None]
  - HYPERTENSION [None]
  - IRRITABILITY [None]
  - INSOMNIA [None]
  - DRY MOUTH [None]
